FAERS Safety Report 15283571 (Version 3)
Quarter: 2018Q3

REPORT INFORMATION
  Report Type: Spontaneous
  Country: CA (occurrence: CA)
  Receive Date: 20180816
  Receipt Date: 20180913
  Transmission Date: 20181010
  Serious: Yes (Hospitalization, Other)
  Sender: FDA-Public Use
  Company Number: CA-CELLTRION INC.-2018CA021689

PATIENT

DRUGS (3)
  1. METHOTREXATE. [Concomitant]
     Active Substance: METHOTREXATE
     Dosage: UNK
     Dates: start: 2015
  2. INFLECTRA [Suspect]
     Active Substance: INFLIXIMAB-DYYB
     Dosage: 5 MG/KG, CYCLIC (EVERY 4 WEEKS)
     Route: 065
  3. INFLECTRA [Suspect]
     Active Substance: INFLIXIMAB-DYYB
     Indication: CROHN^S DISEASE
     Dosage: 5 MG/KG, CYCLIC (EVERY 0, 2 6 THEN EVERY 8 WEEKS)
     Route: 042
     Dates: start: 20180720, end: 20180727

REACTIONS (4)
  - Product use issue [Unknown]
  - Drug effect incomplete [Unknown]
  - Crohn^s disease [Unknown]
  - Condition aggravated [Unknown]

NARRATIVE: CASE EVENT DATE: 2018
